FAERS Safety Report 20210319 (Version 1)
Quarter: 2021Q4

REPORT INFORMATION
  Report Type: Report from Study
  Country: CA (occurrence: CA)
  Receive Date: 20211221
  Receipt Date: 20211221
  Transmission Date: 20220303
  Serious: Yes (Other)
  Sender: FDA-Public Use
  Company Number: CA-BRISTOL-MYERS SQUIBB COMPANY-BMS-2021-043225

PATIENT
  Age: 69 Year
  Sex: Female

DRUGS (1)
  1. ABATACEPT [Suspect]
     Active Substance: ABATACEPT
     Indication: Rheumatoid arthritis
     Dosage: 125 MILLIGRAM, QWK
     Route: 058
     Dates: start: 20201005

REACTIONS (6)
  - Arthropathy [Unknown]
  - Feeling hot [Recovering/Resolving]
  - Sleep disorder [Unknown]
  - Pruritus [Unknown]
  - Neuralgia [Unknown]
  - Nervousness [Recovering/Resolving]
